FAERS Safety Report 16805050 (Version 1)
Quarter: 2019Q3

REPORT INFORMATION
  Report Type: Spontaneous
  Country: US (occurrence: US)
  Receive Date: 20190724
  Receipt Date: 20190724
  Transmission Date: 20191005
  Serious: No
  Sender: FDA-Public Use
  Company Number: None

PATIENT

DRUGS (2)
  1. CAFFEINE CITRATE 60 MG/3 ML VIAL [Suspect]
     Active Substance: CAFFEINE CITRATE
  2. CAFFEINE CITRATE VIAL SOLUTION [Suspect]
     Active Substance: CAFFEINE CITRATE

REACTIONS (3)
  - Product packaging confusion [None]
  - Product name confusion [None]
  - Product label confusion [None]
